FAERS Safety Report 5849266-1 (Version None)
Quarter: 2008Q3

REPORT INFORMATION
  Report Type: 
  Country: None (occurrence: None)
  Receive Date: 20080819
  Receipt Date: 20080812
  Transmission Date: 20090109
  Serious: Yes (Death, Life-Threatening, Hospitalization)
  Sender: FDA-Public Use
  Company Number: CH-NOVOPROD-273642

PATIENT
  Sex: Male
  Weight: 80 kg

DRUGS (9)
  1. NOVOSEVEN [Suspect]
     Indication: TRAUMATIC HAEMORRHAGE
     Dosage: 3 DOSES
     Route: 042
     Dates: start: 20080328, end: 20080328
  2. FENTANYLUM [Concomitant]
     Indication: SEDATION
     Dosage: 0.5 MG/HR MAX, QD
     Route: 042
     Dates: start: 20080328, end: 20080329
  3. MIDAZOLAM [Concomitant]
     Indication: SEDATION
     Dosage: 60 MG MAX/HR
     Route: 042
     Dates: start: 20080328, end: 20080329
  4. ROCURONIUM BROMIDE [Concomitant]
     Dosage: 20-30 MG, QD, BOLUS
     Route: 042
     Dates: start: 20080328, end: 20080328
  5. KEFZOL [Concomitant]
     Indication: ANTIBIOTIC PROPHYLAXIS
     Dosage: 2 G, QD
     Route: 042
     Dates: start: 20080328, end: 20080328
  6. CALCIUM [Concomitant]
     Dosage: 12 G, TOTAL AMOUNT
     Route: 042
     Dates: start: 20080328, end: 20080329
  7. CYCLOKAPRON [Concomitant]
     Indication: FIBRINOLYSIS
     Dosage: 1 G, QD
     Route: 042
     Dates: start: 20080328, end: 20080328
  8. PAVULON [Concomitant]
     Dosage: 8 MG, QD, BOLUS
     Route: 042
     Dates: start: 20080328, end: 20080328
  9. PETHIDINE                          /00016302/ [Concomitant]
     Indication: PAIN
     Dosage: 50 MG, QD
     Route: 042
     Dates: start: 20080329, end: 20080329

REACTIONS (2)
  - DISSEMINATED INTRAVASCULAR COAGULATION [None]
  - MULTI-ORGAN FAILURE [None]
